FAERS Safety Report 15566785 (Version 3)
Quarter: 2019Q1

REPORT INFORMATION
  Report Type: Spontaneous
  Country: BR (occurrence: BR)
  Receive Date: 20181030
  Receipt Date: 20190116
  Transmission Date: 20190417
  Serious: Yes (Other)
  Sender: FDA-Public Use
  Company Number: BR-PFIZER INC-2018421022

PATIENT
  Age: 37 Year
  Sex: Female

DRUGS (6)
  1. LORAX//LORAZEPAM [Suspect]
     Active Substance: LORAZEPAM
     Indication: ANXIETY
     Dosage: 2 MG, 2X/DAY (ONE TABLET IN THE MORNING AND ONE TABLET AT NIGHT)
     Dates: start: 1983
  2. LORAX//LORAZEPAM [Suspect]
     Active Substance: LORAZEPAM
     Dosage: 2 MG, UNK (2 TABLETS OF 1MG)
  3. LORAX//LORAZEPAM [Suspect]
     Active Substance: LORAZEPAM
     Indication: DEPRESSION
     Dosage: 1 MG, UNK
  4. LORAX//LORAZEPAM [Suspect]
     Active Substance: LORAZEPAM
     Dosage: 4 MG, DAILY (HALF AT 7:30AM, HALF IN THE AFTERNOON, ONE AT NIGHT)
     Dates: end: 201810
  5. LORAX//LORAZEPAM [Suspect]
     Active Substance: LORAZEPAM
     Dosage: UNK
     Dates: start: 20190103
  6. SERTRALINE [Concomitant]
     Active Substance: SERTRALINE HYDROCHLORIDE
     Dosage: UNK
     Dates: start: 201802

REACTIONS (24)
  - Drug dependence [Not Recovered/Not Resolved]
  - Somnolence [Unknown]
  - Abdominal pain upper [Unknown]
  - Intentional product misuse [Not Recovered/Not Resolved]
  - Fear [Unknown]
  - Kidney enlargement [Unknown]
  - Panic disorder [Unknown]
  - Feeling abnormal [Recovered/Resolved]
  - Memory impairment [Unknown]
  - Blood cholesterol increased [Not Recovered/Not Resolved]
  - Insomnia [Unknown]
  - Feeling of despair [Recovered/Resolved]
  - Headache [Unknown]
  - Blindness [Not Recovered/Not Resolved]
  - Deafness [Not Recovered/Not Resolved]
  - Product use issue [Not Recovered/Not Resolved]
  - Dizziness [Recovered/Resolved]
  - Blood pressure increased [Not Recovered/Not Resolved]
  - Fatigue [Unknown]
  - Low density lipoprotein increased [Not Recovered/Not Resolved]
  - Cerebrovascular accident [Recovered/Resolved]
  - Malaise [Recovered/Resolved]
  - Feeling drunk [Recovered/Resolved]
  - Abdominal distension [Unknown]

NARRATIVE: CASE EVENT DATE: 1983
